FAERS Safety Report 6151389-7 (Version None)
Quarter: 2009Q2

REPORT INFORMATION
  Report Type: 
  Country: None (occurrence: None)
  Receive Date: 20090408
  Receipt Date: 20090327
  Transmission Date: 20091009
  Serious: No
  Sender: FDA-Public Use
  Company Number: 006005

PATIENT
  Age: 68 Year
  Sex: Female

DRUGS (7)
  1. PLETAL [Suspect]
     Dosage: ORAL
     Route: 048
  2. ASPIRIN [Concomitant]
  3. INSULIN (INSULIN) [Concomitant]
  4. ANTIBIOTIC PREPARATIONS (ANTIBIOTIC PREPARATIONS) [Concomitant]
  5. ERYTHROPOIETIN (ERYTHROPOIETIN) [Concomitant]
  6. CONCENTRATED RED CELLS (CONCENTRATED HUMAN RED) [Concomitant]
  7. PROTON PUMP INHIBITOR (PROTON PUMP INHIBITOR) [Concomitant]

REACTIONS (25)
  - ALANINE AMINOTRANSFERASE INCREASED [None]
  - ALTERED STATE OF CONSCIOUSNESS [None]
  - ANEURYSM RUPTURED [None]
  - ARTERIOSCLEROSIS [None]
  - ASPARTATE AMINOTRANSFERASE INCREASED [None]
  - AZOTAEMIA [None]
  - BLOOD ALKALINE PHOSPHATASE INCREASED [None]
  - BLOOD BILIRUBIN INCREASED [None]
  - BLOOD PRESSURE SYSTOLIC INCREASED [None]
  - CHOLECYSTITIS [None]
  - CHOLELITHIASIS [None]
  - CONJUNCTIVAL DISORDER [None]
  - GALLBLADDER DISORDER [None]
  - GALLBLADDER ENLARGEMENT [None]
  - GALLBLADDER NECROSIS [None]
  - GAMMA-GLUTAMYLTRANSFERASE INCREASED [None]
  - GASTROENTERITIS [None]
  - HAEMATOMA [None]
  - HAEMOBILIA [None]
  - HAEMODIALYSIS [None]
  - HAEMORRHAGIC ASCITES [None]
  - HEPATIC FUNCTION ABNORMAL [None]
  - JAUNDICE [None]
  - NEPHROGENIC ANAEMIA [None]
  - NODULE [None]
